FAERS Safety Report 9086174 (Version 5)
Quarter: 2013Q4

REPORT INFORMATION
  Report Type: Spontaneous
  Country: US (occurrence: US)
  Receive Date: 20130131
  Receipt Date: 20131219
  Transmission Date: 20140711
  Serious: Yes (Hospitalization, Other)
  Sender: FDA-Public Use
  Company Number: US-009507513-1301USA014059

PATIENT
  Sex: Female

DRUGS (4)
  1. FOSAMAX [Suspect]
     Indication: BONE DENSITY ABNORMAL
     Dosage: 70 MG, QW
     Route: 048
     Dates: start: 2004
  2. FOSAMAX [Suspect]
     Indication: OSTEOPENIA
  3. FOSAMAX [Suspect]
     Indication: OSTEOPOROSIS
  4. ALENDRONATE SODIUM [Suspect]
     Indication: BONE DENSITY ABNORMAL
     Dosage: 70 MG, UNK
     Route: 048
     Dates: start: 2008, end: 2009

REACTIONS (20)
  - Femur fracture [Unknown]
  - Intramedullary rod insertion [Unknown]
  - Low turnover osteopathy [Unknown]
  - Arthritis [Unknown]
  - Hypothyroidism [Unknown]
  - Bone loss [Unknown]
  - Blood cholesterol increased [Unknown]
  - Nasopharyngitis [Unknown]
  - Increased tendency to bruise [Unknown]
  - Weight decreased [Unknown]
  - Sinus disorder [Unknown]
  - Depression [Unknown]
  - Fluid retention [Unknown]
  - Tonsillectomy [Unknown]
  - Adenoidectomy [Unknown]
  - Leukocytosis [Unknown]
  - Electrocardiogram QT prolonged [Unknown]
  - Arthralgia [Not Recovered/Not Resolved]
  - Nausea [Unknown]
  - Constipation [Unknown]
